FAERS Safety Report 5971940-7 (Version None)
Quarter: 2008Q4

REPORT INFORMATION
  Report Type: 
  Country: None (occurrence: None)
  Receive Date: 20081121
  Receipt Date: 20081106
  Transmission Date: 20090506
  Serious: Yes (Hospitalization, Other)
  Sender: FDA-Public Use
  Company Number: PHHY2008GB27370

PATIENT
  Age: 33 Year
  Sex: Female

DRUGS (4)
  1. METOCLOPRAMIDE [Suspect]
     Dosage: 60 MG, ORAL
     Route: 048
  2. PREDNISOLONE [Suspect]
     Indication: WEGENER'S GRANULOMATOSIS
     Dosage: 30 MG, ORAL
     Route: 048
  3. BINOVUM (ETHINYLESTRADIOL, NORETHISTERONE) [Concomitant]
  4. OMEPRAZOLE [Concomitant]

REACTIONS (2)
  - DRUG INTERACTION [None]
  - DYSTONIA [None]
